FAERS Safety Report 7772077-7 (Version None)
Quarter: 2011Q3

REPORT INFORMATION
  Report Type: 
  Country: None (occurrence: None)
  Receive Date: 20110922
  Receipt Date: 20110701
  Transmission Date: 20111222
  Serious: Yes (Hospitalization)
  Sender: FDA-Public Use
  Company Number: US-ASTRAZENECA-2011SE39554

PATIENT
  Age: 49 Year
  Sex: Female
  Weight: 136.1 kg

DRUGS (4)
  1. NAPROSYN [Concomitant]
     Dates: start: 20080101
  2. SEROQUEL [Suspect]
     Route: 048
     Dates: start: 20091130
  3. FESOTERODINE: PLACEBO (CODE NOT BROKEN) [Suspect]
     Route: 048
     Dates: start: 20100323, end: 20100610
  4. ZOLOFT [Concomitant]
     Dates: start: 20091101

REACTIONS (1)
  - DIABETIC KETOACIDOSIS [None]
